FAERS Safety Report 8418094-5 (Version None)
Quarter: 2012Q2

REPORT INFORMATION
  Report Type: 
  Country: None (occurrence: None)
  Receive Date: 20120607
  Receipt Date: 20120529
  Transmission Date: 20120825
  Serious: Yes (Hospitalization)
  Sender: FDA-Public Use
  Company Number: US-JNJFOC-20120520860

PATIENT
  Age: 46 Year
  Sex: Female
  Weight: 74 kg

DRUGS (3)
  1. EXTRA STRENGTH TYLENOL [Suspect]
     Route: 048
  2. EXTRA STRENGTH TYLENOL [Suspect]
     Indication: PRODUCT USED FOR UNKNOWN INDICATION
     Dosage: TAKING UP TO 1500 MG THREE TIMES PER DAY
     Route: 048
     Dates: start: 20120501
  3. EXTRA STRENGTH TYLENOL PM [Suspect]
     Indication: PRODUCT USED FOR UNKNOWN INDICATION
     Dosage: AT LEAST TWO PILLS EVERY NIGHT
     Route: 048

REACTIONS (5)
  - TRANSAMINASES INCREASED [None]
  - VOMITING [None]
  - OVERDOSE [None]
  - DRUG ADMINISTRATION ERROR [None]
  - NAUSEA [None]
